FAERS Safety Report 9472516 (Version 1)
Quarter: 2013Q3

REPORT INFORMATION
  Report Type: Spontaneous
  Country: US (occurrence: None)
  Receive Date: 20130821
  Receipt Date: 20130821
  Transmission Date: 20140515
  Serious: Yes (Other)
  Sender: FDA-Public Use
  Company Number: None

PATIENT
  Age: 72 Year
  Sex: Male
  Weight: 83 kg

DRUGS (2)
  1. CIPROFLOXACIN [Suspect]
     Indication: DIVERTICULITIS
     Dosage: 1 IVPB BAG, INTRAVENOUS
     Route: 042
     Dates: start: 20130818, end: 20130818
  2. FENTANYL [Concomitant]

REACTIONS (2)
  - Rash pruritic [None]
  - Dyspnoea [None]
